FAERS Safety Report 11705942 (Version 1)
Quarter: 2015Q4

REPORT INFORMATION
  Report Type: Report from Study
  Country: US (occurrence: US)
  Receive Date: 20151106
  Receipt Date: 20151106
  Transmission Date: 20160304
  Serious: Yes (Hospitalization)
  Sender: FDA-Public Use
  Company Number: US-BAYER-2015-026691

PATIENT
  Age: 51 Year
  Sex: Male

DRUGS (3)
  1. STIVARGA [Suspect]
     Active Substance: REGORAFENIB
     Indication: COLON CANCER
     Dosage: 80 MG, QD
     Route: 048
  2. STIVARGA [Suspect]
     Active Substance: REGORAFENIB
     Indication: COLON CANCER
     Dosage: 160 MG, QD WITH LOWFAT BREAKFAST
     Route: 048
     Dates: start: 20150207
  3. STIVARGA [Suspect]
     Active Substance: REGORAFENIB
     Indication: COLON CANCER
     Dosage: 80 MG, QD WITH LOWFAT BREAKFAST
     Route: 048
     Dates: start: 2015

REACTIONS (10)
  - Diarrhoea [Not Recovered/Not Resolved]
  - Dry skin [Recovering/Resolving]
  - Dry mouth [None]
  - Skin exfoliation [None]
  - Rash [Not Recovered/Not Resolved]
  - Diarrhoea [None]
  - Hospitalisation [None]
  - Decreased appetite [None]
  - Diarrhoea [None]
  - Skin fissures [None]

NARRATIVE: CASE EVENT DATE: 2015
